FAERS Safety Report 23276229 (Version 1)
Quarter: 2023Q4

REPORT INFORMATION
  Report Type: Spontaneous
  Country: CA (occurrence: CA)
  Receive Date: 20231208
  Receipt Date: 20231208
  Transmission Date: 20240109
  Serious: No
  Sender: FDA-Public Use
  Company Number: CA-PFIZER INC-PV202300191779

PATIENT

DRUGS (1)
  1. FRAGMIN [Suspect]
     Active Substance: DALTEPARIN SODIUM
     Dosage: 18000 IU, 0.72 ML 0.72 ML SYR 5 EA IFC ENG

REACTIONS (2)
  - Drug dose omission by device [Unknown]
  - Device issue [Unknown]
